FAERS Safety Report 7538942-0 (Version None)
Quarter: 2011Q2

REPORT INFORMATION
  Report Type: 
  Country: None (occurrence: None)
  Receive Date: 20110603
  Receipt Date: 20110523
  Transmission Date: 20111010
  Serious: Yes (Life-Threatening)
  Sender: FDA-Public Use
  Company Number: 1000020142

PATIENT
  Age: 94 Year
  Sex: Female
  Weight: 60 kg

DRUGS (4)
  1. STABLON (TIANEPTINE SODIUM) [Concomitant]
  2. MEMANTINE HCL [Suspect]
     Indication: DEMENTIA ALZHEIMER'S TYPE
     Dosage: 20 MG (20 MG, 1 IN 1 D), ORAL
     Route: 048
     Dates: start: 20101026, end: 20110412
  3. ACETAMINOPHEN [Concomitant]
  4. PROTELOS (STRONTIUM RANELATE) [Concomitant]

REACTIONS (5)
  - CARDIAC FAILURE [None]
  - HYPERTROPHIC CARDIOMYOPATHY [None]
  - BUNDLE BRANCH BLOCK LEFT [None]
  - BRONCHIAL OBSTRUCTION [None]
  - LEFT VENTRICULAR HYPERTROPHY [None]
